FAERS Safety Report 6181416-2 (Version None)
Quarter: 2009Q2

REPORT INFORMATION
  Report Type: 
  Country: None (occurrence: None)
  Receive Date: 20090501
  Receipt Date: 20090316
  Transmission Date: 20091009
  Serious: No
  Sender: FDA-Public Use
  Company Number: 2009000627

PATIENT
  Age: 70 Year
  Sex: Female

DRUGS (1)
  1. TREANDA [Suspect]
     Indication: EXTRANODAL MARGINAL ZONE B-CELL LYMPHOMA (MALT TYPE)
     Dosage: 154, INTRAVENOUS
     Route: 042
     Dates: start: 20080730, end: 20080925

REACTIONS (3)
  - NEUROPATHY PERIPHERAL [None]
  - NEUTROPENIA [None]
  - PERONEAL NERVE PALSY [None]
